FAERS Safety Report 12979204 (Version 1)
Quarter: 2016Q4

REPORT INFORMATION
  Report Type: Spontaneous
  Country: FR (occurrence: FR)
  Receive Date: 20161128
  Receipt Date: 20161128
  Transmission Date: 20170207
  Serious: Yes (Hospitalization)
  Sender: FDA-Public Use
  Company Number: FR-JNJFOC-20161121804

PATIENT
  Age: 82 Year
  Sex: Female

DRUGS (13)
  1. TARDYFERON [Concomitant]
     Active Substance: FERROUS SULFATE
     Route: 065
  2. EUPANTOL [Concomitant]
     Active Substance: PANTOPRAZOLE SODIUM
     Route: 065
  3. TAHOR [Concomitant]
     Active Substance: ATORVASTATIN CALCIUM
     Route: 065
  4. RISPERIDONE. [Suspect]
     Active Substance: RISPERIDONE
     Indication: DEMENTIA
     Dosage: REDUCED DOSE
     Route: 048
  5. MOVICOL [Concomitant]
     Active Substance: POLYETHYLENE GLYCOL 3350\POTASSIUM CHLORIDE\SODIUM BICARBONATE\SODIUM CHLORIDE
     Route: 065
  6. SERTRALINE HYDROCHLORIDE. [Suspect]
     Active Substance: SERTRALINE HYDROCHLORIDE
     Indication: DEPRESSION
     Route: 048
     Dates: end: 201607
  7. NORSET [Suspect]
     Active Substance: MIRTAZAPINE
     Indication: DEPRESSION
     Dosage: 2 DOSAGE FORMS (STRENGTH OF EACH DF: 15 MG) DAILY
     Route: 048
  8. RISPERIDONE. [Suspect]
     Active Substance: RISPERIDONE
     Indication: DEMENTIA
     Dosage: 1 DF (0.5 DF, 2 IN 1 DAY)
     Route: 048
  9. TRANXENE T-TAB [Suspect]
     Active Substance: CLORAZEPATE DIPOTASSIUM
     Indication: DEPRESSION
     Dosage: 3 CAPSULES (STRENGTH: 10 MG) DAILY
     Route: 048
     Dates: end: 201607
  10. CACIT VITAMINE D3 [Concomitant]
     Active Substance: CALCIUM CARBONATE\CHOLECALCIFEROL
     Route: 065
  11. DOLIPRANE [Concomitant]
     Active Substance: ACETAMINOPHEN
     Route: 065
  12. DIFFU K [Concomitant]
     Active Substance: POTASSIUM CHLORIDE
     Route: 065
  13. CLASTOBAN [Concomitant]
     Active Substance: CLODRONIC ACID
     Route: 065

REACTIONS (4)
  - Somnolence [Recovered/Resolved]
  - Lung infection [Recovered/Resolved]
  - General physical health deterioration [Recovered/Resolved]
  - Choking [Recovered/Resolved]

NARRATIVE: CASE EVENT DATE: 20160730
